FAERS Safety Report 5751570-2 (Version None)
Quarter: 2008Q2

REPORT INFORMATION
  Report Type: 
  Country: None (occurrence: None)
  Receive Date: 20080528
  Receipt Date: 20080519
  Transmission Date: 20081010
  Serious: Yes (Hospitalization, Other)
  Sender: FDA-Public Use
  Company Number: PHHY2008NO08627

PATIENT
  Sex: Male

DRUGS (5)
  1. LESCOL [Suspect]
     Indication: BLOOD CHOLESTEROL INCREASED
     Dosage: 80 MG/DAY
     Dates: start: 20030401, end: 20070101
  2. LESCOL [Suspect]
     Dosage: 160 MG/DAY
  3. ZOCOR [Suspect]
     Dosage: UNK
     Dates: start: 20070101
  4. EZETROL [Concomitant]
     Dosage: UNK
     Dates: start: 20070101
  5. ALLOPURINOL [Concomitant]

REACTIONS (6)
  - BRONCHOSCOPY ABNORMAL [None]
  - COUGH [None]
  - HYPOXIA [None]
  - LUNG DISORDER [None]
  - LUNG INFECTION [None]
  - MALAISE [None]
